FAERS Safety Report 15621071 (Version 2)
Quarter: 2018Q4

REPORT INFORMATION
  Report Type: Spontaneous
  Country: ES (occurrence: ES)
  Receive Date: 20181115
  Receipt Date: 20181115
  Transmission Date: 20190205
  Serious: Yes (Hospitalization)
  Sender: FDA-Public Use
  Company Number: PHHY2018ES149238

PATIENT
  Age: 68 Year
  Sex: Male

DRUGS (2)
  1. CICLOSPORIN [Suspect]
     Active Substance: CYCLOSPORINE
     Indication: IMMUNOSUPPRESSANT DRUG THERAPY
  2. CICLOSPORIN [Suspect]
     Active Substance: CYCLOSPORINE
     Indication: HEART TRANSPLANT
     Dosage: 75 MG, QD
     Route: 065
     Dates: start: 1997, end: 201709

REACTIONS (6)
  - Cerebral atrophy [Unknown]
  - Hyperglycaemia [Recovering/Resolving]
  - Cognitive disorder [Recovering/Resolving]
  - Choking [Unknown]
  - Chorea [Recovered/Resolved]
  - Gait disturbance [Recovering/Resolving]
